FAERS Safety Report 19050285 (Version 1)
Quarter: 2021Q1

REPORT INFORMATION
  Report Type: Spontaneous
  Country: US (occurrence: US)
  Receive Date: 20210323
  Receipt Date: 20210323
  Transmission Date: 20210420
  Serious: Yes (Hospitalization)
  Sender: FDA-Public Use
  Company Number: None

PATIENT
  Age: 62 Year
  Sex: Female
  Weight: 63 kg

DRUGS (7)
  1. TAGRISSO [Suspect]
     Active Substance: OSIMERTINIB
     Indication: LUNG NEOPLASM MALIGNANT
     Route: 048
  2. PEPCID 20MG QD [Concomitant]
  3. ZOFRAN 4MG Q 8 HR [Concomitant]
  4. DEXAMETHASONE 2MG BID [Concomitant]
  5. POTASSIUM CL 20MEQ/15ML ? 15ML QD [Concomitant]
  6. SERTRALINE 50MG QD [Concomitant]
  7. ALPRAZOLAM 0.5MG BID [Concomitant]

REACTIONS (15)
  - Memory impairment [None]
  - Vomiting [None]
  - Agitation [None]
  - Anuria [None]
  - Deep vein thrombosis [None]
  - Nausea [None]
  - Blood potassium decreased [None]
  - Therapy interrupted [None]
  - Aphasia [None]
  - Mobility decreased [None]
  - Urinary tract infection [None]
  - Pain in extremity [None]
  - Asthenia [None]
  - Hypophagia [None]
  - Dehydration [None]

NARRATIVE: CASE EVENT DATE: 20210305
